FAERS Safety Report 11828572 (Version 2)
Quarter: 2016Q2

REPORT INFORMATION
  Report Type: Spontaneous
  Country: JP (occurrence: JP)
  Receive Date: 20151211
  Receipt Date: 20160411
  Transmission Date: 20160815
  Serious: Yes (Hospitalization, Other)
  Sender: FDA-Public Use
  Company Number: JP-PFIZER INC-2015427550

PATIENT
  Age: 60 Year
  Sex: Male
  Weight: 51 kg

DRUGS (5)
  1. INLYTA [Suspect]
     Active Substance: AXITINIB
     Dosage: 6 MG, UNK
     Route: 048
  2. INLYTA [Suspect]
     Active Substance: AXITINIB
     Dosage: 10 MG, DAILY
     Route: 048
     Dates: start: 20141016, end: 20150910
  3. INLYTA [Suspect]
     Active Substance: AXITINIB
     Indication: RENAL CANCER
     Dosage: 5 MG, 2X/DAY
     Route: 048
     Dates: start: 20140807
  4. INLYTA [Suspect]
     Active Substance: AXITINIB
     Dosage: 10 MG, DAILY
     Route: 048
     Dates: end: 20151210
  5. VOTRIENT [Concomitant]
     Active Substance: PAZOPANIB HYDROCHLORIDE
     Indication: RENAL CANCER
     Dosage: 800 MG, 1X/DAY
     Route: 048
     Dates: start: 20150910, end: 20151005

REACTIONS (10)
  - Platelet count decreased [Unknown]
  - Generalised oedema [Unknown]
  - Renal impairment [Not Recovered/Not Resolved]
  - Renal cancer [Unknown]
  - Dyspnoea exertional [Unknown]
  - Pyrexia [Unknown]
  - Malaise [Unknown]
  - Protein urine [Unknown]
  - Blood creatinine increased [Unknown]
  - Disease progression [Unknown]

NARRATIVE: CASE EVENT DATE: 20140828
